FAERS Safety Report 9844580 (Version 1)
Quarter: 2014Q1

REPORT INFORMATION
  Report Type: Spontaneous
  Country: CN (occurrence: None)
  Receive Date: 20140122
  Receipt Date: 20140122
  Transmission Date: 20141002
  Serious: Yes (Hospitalization)
  Sender: FDA-Public Use
  Company Number: B0960853A

PATIENT
  Age: 52 Year
  Sex: Female

DRUGS (1)
  1. PAROXETINE HYDROCHLORIDE [Suspect]
     Indication: DEPRESSION
     Route: 048
     Dates: start: 201311

REACTIONS (5)
  - Listless [None]
  - Restlessness [None]
  - Vision blurred [None]
  - Cerebral infarction [None]
  - Treatment noncompliance [None]
